FAERS Safety Report 9237103 (Version 1)
Quarter: 2013Q2

REPORT INFORMATION
  Report Type: Spontaneous
  Country: CA (occurrence: CA)
  Receive Date: 20130417
  Receipt Date: 20130417
  Transmission Date: 20140414
  Serious: Yes (Death)
  Sender: FDA-Public Use
  Company Number: CA-GLAXOSMITHKLINE-A1019358A

PATIENT
  Sex: Male
  Weight: 77 kg

DRUGS (1)
  1. BENLYSTA [Suspect]
     Indication: SYSTEMIC LUPUS ERYTHEMATOSUS
     Dosage: 800MG SEE DOSAGE TEXT
     Route: 042
     Dates: start: 20120821

REACTIONS (2)
  - Pulmonary embolism [Fatal]
  - Thrombophlebitis [Fatal]
